FAERS Safety Report 24015508 (Version 2)
Quarter: 2024Q3

REPORT INFORMATION
  Report Type: Spontaneous
  Country: US (occurrence: US)
  Receive Date: 20240626
  Receipt Date: 20240809
  Transmission Date: 20241017
  Serious: No
  Sender: MYLAN
  Company Number: US-MYLANLABS-2024M1056024

PATIENT
  Age: 68 Year
  Sex: Female
  Weight: 71.66 kg

DRUGS (5)
  1. DILANTIN [Suspect]
     Active Substance: PHENYTOIN
     Indication: Seizure
     Dosage: 100 MILLIGRAM, TID (THREE TIMES A DAY)
     Route: 065
  2. DILANTIN [Suspect]
     Active Substance: PHENYTOIN
     Indication: Epilepsy
     Dosage: UNK
     Route: 065
  3. VITAMIN D3 [Concomitant]
     Active Substance: CHOLECALCIFEROL
     Dosage: UNK
     Route: 065
  4. METHYLCOBALAMIN [Concomitant]
     Active Substance: METHYLCOBALAMIN
     Dosage: UNK
     Route: 065
  5. GARLIC [Concomitant]
     Active Substance: GARLIC
     Dosage: UNK
     Route: 065

REACTIONS (11)
  - Hypoaesthesia [Recovered/Resolved]
  - Muscle tightness [Unknown]
  - Paraesthesia [Recovered/Resolved]
  - Neck pain [Unknown]
  - Erythema [Unknown]
  - Oral disorder [Unknown]
  - Eye pruritus [Unknown]
  - Rash erythematous [Unknown]
  - Rash [Recovered/Resolved]
  - Expired product administered [Unknown]
  - Product availability issue [Unknown]

NARRATIVE: CASE EVENT DATE: 20240501
